FAERS Safety Report 6791336-8 (Version None)
Quarter: 2010Q2

REPORT INFORMATION
  Report Type: 
  Country: None (occurrence: None)
  Receive Date: 20100624
  Receipt Date: 20100614
  Transmission Date: 20101027
  Serious: Yes (Life-Threatening, Hospitalization, Other)
  Sender: FDA-Public Use
  Company Number: US-BAYER-201024314NA

PATIENT
  Sex: Male

DRUGS (4)
  1. AVELOX [Suspect]
     Indication: ANTIBIOTIC THERAPY
     Dosage: UNIT DOSE: 400 MG
     Route: 048
     Dates: start: 20091201
  2. HYZAAR [Concomitant]
     Dosage: 100-12.5
  3. ASPIRIN [Concomitant]
  4. ALLOPURINOL [Concomitant]

REACTIONS (8)
  - ANAPHYLACTIC REACTION [None]
  - ANGIOEDEMA [None]
  - ATRIAL FIBRILLATION [None]
  - CHEST PAIN [None]
  - GENERALISED ERYTHEMA [None]
  - LOSS OF CONSCIOUSNESS [None]
  - MYOCARDIAL INFARCTION [None]
  - SHOCK [None]
